FAERS Safety Report 9144294 (Version 1)
Quarter: 2013Q1

REPORT INFORMATION
  Report Type: Spontaneous
  Country: FR (occurrence: FR)
  Receive Date: 20130306
  Receipt Date: 20130306
  Transmission Date: 20140127
  Serious: Yes (Hospitalization, Other)
  Sender: FDA-Public Use
  Company Number: FR-ROCHE-1198069

PATIENT
  Age: 91 Year
  Sex: Female

DRUGS (8)
  1. LUCENTIS [Suspect]
     Indication: AGE-RELATED MACULAR DEGENERATION
     Route: 031
     Dates: start: 20110721
  2. COKENZEN [Concomitant]
  3. TEMERIT [Concomitant]
     Route: 065
  4. PLAVIX [Concomitant]
     Route: 050
  5. LERCANIDIPINE [Concomitant]
     Route: 065
  6. STILNOX [Concomitant]
     Route: 065
  7. LEXOMIL [Concomitant]
  8. EPINITRIL [Concomitant]

REACTIONS (1)
  - Dysarthria [Recovered/Resolved]
